FAERS Safety Report 6192831-5 (Version None)
Quarter: 2009Q2

REPORT INFORMATION
  Report Type: 
  Country: None (occurrence: None)
  Receive Date: 20090518
  Receipt Date: 20090508
  Transmission Date: 20091009
  Serious: Yes (Other)
  Sender: FDA-Public Use
  Company Number: US-AVENTIS-200914070US

PATIENT
  Age: 72 Year
  Sex: Female

DRUGS (4)
  1. LANTUS [Suspect]
     Indication: DIABETES MELLITUS
     Route: 058
  2. OPTICLIK (INSULIN INJECTION PEN) [Suspect]
     Indication: DIABETES MELLITUS
  3. CORTISONE [Suspect]
     Dosage: DOSE: UNK; ROUTE: INTRAARTICULAR, INTRASYNOVIAL
     Route: 050
  4. HUMALOG [Concomitant]
     Dosage: DOSE: UNK

REACTIONS (3)
  - BLOOD GLUCOSE INCREASED [None]
  - CATARACT [None]
  - MUSCULOSKELETAL STIFFNESS [None]
